FAERS Safety Report 6264469-2 (Version None)
Quarter: 2009Q3

REPORT INFORMATION
  Report Type: 
  Country: None (occurrence: None)
  Receive Date: 20090710
  Receipt Date: 20090701
  Transmission Date: 20100115
  Serious: Yes (Disabling)
  Sender: FDA-Public Use
  Company Number: GB-ASTRAZENECA-2009SE03816

PATIENT
  Age: 79 Year
  Sex: Female

DRUGS (6)
  1. PROPOFOL-ICI [Suspect]
  2. FENTANYL [Suspect]
  3. ATRACURIUM BESYLATE [Suspect]
  4. MIDAZOLAM HCL [Suspect]
  5. NEOSTIGMINE BROMIDE [Suspect]
  6. PROCHLORPERAZINE [Concomitant]

REACTIONS (1)
  - DYSKINESIA [None]
